FAERS Safety Report 8583981-4 (Version None)
Quarter: 2012Q3

REPORT INFORMATION
  Report Type: 
  Country: None (occurrence: None)
  Receive Date: 20120810
  Receipt Date: 20120803
  Transmission Date: 20120928
  Serious: Yes (Death, Disabling)
  Sender: FDA-Public Use
  Company Number: US-009507513-1207USA010506

PATIENT

DRUGS (4)
  1. DEPAKOTE [Concomitant]
     Dosage: 250 MG, BID
  2. VALIUM [Concomitant]
     Dosage: UNK, UNKNOWN
  3. SAPHRIS [Suspect]
     Indication: BIPOLAR DISORDER
     Dosage: 5 MG, HS
     Route: 060
     Dates: start: 20111109
  4. PRISTIQ [Concomitant]

REACTIONS (1)
  - DEATH [None]
